FAERS Safety Report 14251746 (Version 1)
Quarter: 2017Q4

REPORT INFORMATION
  Report Type: Spontaneous
  Country: US (occurrence: US)
  Receive Date: 20171205
  Receipt Date: 20171205
  Transmission Date: 20180321
  Serious: Yes (Death)
  Sender: FDA-Public Use
  Company Number: US-CIPLA LTD.-2017US21901

PATIENT

DRUGS (7)
  1. TRAMADOL. [Suspect]
     Active Substance: TRAMADOL
     Dosage: UNK
     Route: 048
  2. ZOLPIDEM TARTARATE [Suspect]
     Active Substance: ZOLPIDEM TARTRATE
     Dosage: UNK
     Route: 048
  3. METFORMIN [Suspect]
     Active Substance: METFORMIN HYDROCHLORIDE
     Dosage: UNK
     Route: 048
  4. VENLAFAXINE [Suspect]
     Active Substance: VENLAFAXINE HYDROCHLORIDE
     Dosage: UNK
     Route: 048
  5. NORTRIPTYLINE [Suspect]
     Active Substance: NORTRIPTYLINE
     Dosage: UNK
     Route: 048
  6. ZIPRASIDONE. [Suspect]
     Active Substance: ZIPRASIDONE
     Dosage: UNK
     Route: 048
  7. DOXEPIN [Suspect]
     Active Substance: DOXEPIN
     Dosage: UNK
     Route: 048

REACTIONS (2)
  - Toxicity to various agents [Fatal]
  - Completed suicide [Fatal]
